FAERS Safety Report 13163322 (Version 2)
Quarter: 2017Q2

REPORT INFORMATION
  Report Type: Spontaneous
  Country: US (occurrence: US)
  Receive Date: 20170130
  Receipt Date: 20170421
  Transmission Date: 20170830
  Serious: No
  Sender: FDA-Public Use
  Company Number: US-TEVA-727781ACC

PATIENT
  Age: 62 Year
  Sex: Female

DRUGS (10)
  1. SIMVASTATIN. [Concomitant]
     Active Substance: SIMVASTATIN
  2. IMITREX [Concomitant]
     Active Substance: SUMATRIPTAN SUCCINATE
  3. CALCIUM [Concomitant]
     Active Substance: CALCIUM
  4. DRISDOL [Concomitant]
     Active Substance: ERGOCALCIFEROL
  5. PROLIA [Concomitant]
     Active Substance: DENOSUMAB
  6. AMPYRA [Concomitant]
     Active Substance: DALFAMPRIDINE
  7. CIMETIDINE [Concomitant]
     Active Substance: CIMETIDINE
  8. EVISTA [Concomitant]
     Active Substance: RALOXIFENE HYDROCHLORIDE
  9. NORTRIPTYLINE [Concomitant]
     Active Substance: NORTRIPTYLINE
  10. COPAXONE [Suspect]
     Active Substance: GLATIRAMER ACETATE
     Indication: MULTIPLE SCLEROSIS
     Dates: start: 20150128

REACTIONS (3)
  - Drug dose omission [Unknown]
  - Injection site reaction [Not Recovered/Not Resolved]
  - Injection site pain [Not Recovered/Not Resolved]

NARRATIVE: CASE EVENT DATE: 20161115
